FAERS Safety Report 5584550-0 (Version None)
Quarter: 2008Q1

REPORT INFORMATION
  Report Type: 
  Country: None (occurrence: None)
  Receive Date: 20080108
  Receipt Date: 20071231
  Transmission Date: 20080703
  Serious: Yes (Hospitalization)
  Sender: FDA-Public Use
  Company Number: PHHO2007CH13825

PATIENT
  Age: 48 Year
  Sex: Male

DRUGS (2)
  1. MYFORTIC [Suspect]
     Indication: RENAL TRANSPLANT
     Dosage: 720 MG, BID
     Route: 048
     Dates: start: 20070621
  2. TACROLIMUS [Suspect]
     Indication: RENAL TRANSPLANT
     Dosage: 3.5 MG, BID
     Route: 048
     Dates: start: 20070621

REACTIONS (1)
  - DEEP VEIN THROMBOSIS [None]
